FAERS Safety Report 4834740-7 (Version None)
Quarter: 2005Q4

REPORT INFORMATION
  Report Type: 
  Country: None (occurrence: None)
  Receive Date: 20051122
  Receipt Date: 20050809
  Transmission Date: 20060501
  Serious: No
  Sender: FDA-Public Use
  Company Number: US-BRISTOL-MYERS SQUIBB COMPANY-13068663

PATIENT
  Age: 82 Year
  Sex: Male
  Weight: 75 kg

DRUGS (3)
  1. PRAVACHOL [Suspect]
     Indication: BLOOD CHOLESTEROL INCREASED
     Route: 048
     Dates: start: 20040901
  2. NORVASC [Concomitant]
  3. WARFARIN [Concomitant]
     Dosage: MONDAY-SATURDAY, NO MEDICATION ON SUNDAY

REACTIONS (2)
  - MYALGIA [None]
  - PAIN IN EXTREMITY [None]
